FAERS Safety Report 6384472-1 (Version None)
Quarter: 2009Q4

REPORT INFORMATION
  Report Type: 
  Country: None (occurrence: None)
  Receive Date: 20091001
  Receipt Date: 20090922
  Transmission Date: 20100525
  Serious: Yes (Other)
  Sender: FDA-Public Use
  Company Number: US-NOVOPROD-291982

PATIENT
  Age: 82 Year
  Sex: Female
  Weight: 79.819 kg

DRUGS (5)
  1. NOVOLIN 70/30 [Suspect]
     Indication: TYPE 2 DIABETES MELLITUS
     Dosage: UNKNOWN
     Route: 058
  2. SPIRIVA [Concomitant]
     Indication: CHRONIC OBSTRUCTIVE PULMONARY DISEASE
     Dosage: UNKNOWN
     Route: 055
  3. SPIRIVA [Concomitant]
     Indication: BRONCHIECTASIS
  4. PREVENTIL [Concomitant]
     Indication: CHRONIC OBSTRUCTIVE PULMONARY DISEASE
     Dosage: UNK, PRN
     Route: 055
  5. PREVENTIL [Concomitant]
     Indication: BRONCHIECTASIS

REACTIONS (1)
  - SPINAL COLUMN STENOSIS [None]
